FAERS Safety Report 4483245-4 (Version None)
Quarter: 2004Q3

REPORT INFORMATION
  Report Type: 
  Country: None (occurrence: None)
  Receive Date: 20040921
  Receipt Date: 20040622
  Transmission Date: 20050211
  Serious: Yes (Hospitalization)
  Sender: FDA-Public Use
  Company Number: 163-20785-04060551

PATIENT
  Age: 74 Year
  Sex: Female

DRUGS (4)
  1. THALOMID [Suspect]
     Indication: MULTIPLE MYELOMA
     Dosage: SEE IMAGE
     Route: 048
     Dates: start: 20030701, end: 20030801
  2. VINCRISTINE [Suspect]
     Indication: MULTIPLE MYELOMA
     Dosage: 0.5 MG, QD, INTRAVENOUS
     Route: 042
     Dates: start: 20030726, end: 20030729
  3. ADRIAMYCIN PFS [Suspect]
     Indication: MULTIPLE MYELOMA
     Dosage: 17 MG, QD, INTRAVENOUS
     Route: 042
     Dates: start: 20030726, end: 20030729
  4. DEXAMETHASONE [Suspect]
     Indication: MULTIPLE MYELOMA
     Dosage: 40 MG, QD, P.O.
     Dates: start: 20030726, end: 20030729

REACTIONS (2)
  - HAEMOGLOBIN DECREASED [None]
  - TACHYCARDIA [None]
